FAERS Safety Report 21440741 (Version 5)
Quarter: 2023Q2

REPORT INFORMATION
  Report Type: Report from Study
  Country: FR (occurrence: FR)
  Receive Date: 20221011
  Receipt Date: 20230413
  Transmission Date: 20230722
  Serious: Yes (Death, Other)
  Sender: FDA-Public Use
  Company Number: FR-GILEAD-2022-0600943

PATIENT
  Sex: Female
  Weight: 58 kg

DRUGS (4)
  1. SACITUZUMAB GOVITECAN-HZIY [Suspect]
     Active Substance: SACITUZUMAB GOVITECAN-HZIY
     Indication: Triple negative breast cancer
     Dosage: 10 MG/KG, CYCLE 1, DAYS 1,8
     Route: 042
     Dates: start: 20220422, end: 20220429
  2. SACITUZUMAB GOVITECAN-HZIY [Suspect]
     Active Substance: SACITUZUMAB GOVITECAN-HZIY
     Dosage: 10 MG/KG, CYCLE 2, DAYS 1,8
     Route: 042
     Dates: start: 20220511, end: 20220518
  3. SACITUZUMAB GOVITECAN-HZIY [Suspect]
     Active Substance: SACITUZUMAB GOVITECAN-HZIY
     Dosage: 7.5 MG/KG, CYCLE 3, DAYS 1, DAY 8 NOT DONE
     Route: 042
     Dates: start: 20220601, end: 20220601
  4. SACITUZUMAB GOVITECAN-HZIY [Suspect]
     Active Substance: SACITUZUMAB GOVITECAN-HZIY
     Dosage: 10 MG/KG, AT TREATMENT DISCONTINUATION
     Route: 042

REACTIONS (2)
  - General physical condition abnormal [Fatal]
  - Off label use [Unknown]

NARRATIVE: CASE EVENT DATE: 20220511
